FAERS Safety Report 18846658 (Version 3)
Quarter: 2021Q2

REPORT INFORMATION
  Report Type: Spontaneous
  Country: US (occurrence: US)
  Receive Date: 20210204
  Receipt Date: 20210412
  Transmission Date: 20210717
  Serious: Yes (Other)
  Sender: FDA-Public Use
  Company Number: US-PFIZER INC-2020306201

PATIENT
  Age: 76 Year
  Sex: Female

DRUGS (1)
  1. IBRANCE [Suspect]
     Active Substance: PALBOCICLIB
     Indication: BREAST CANCER METASTATIC
     Dosage: 75 MG, CYCLIC (TAKE 1 CAPSULE BY MOUTH DAILY FOR 14 DAYS THEN OFF FOR 14 DAYS + REPEAT CYCLE)
     Route: 048
     Dates: end: 202012

REACTIONS (4)
  - Cerebrovascular accident [Unknown]
  - Product use issue [Unknown]
  - Confusional state [Unknown]
  - Off label use [Unknown]
